FAERS Safety Report 7166923-8 (Version None)
Quarter: 2010Q4

REPORT INFORMATION
  Report Type: 
  Country: None (occurrence: None)
  Receive Date: 20101213
  Receipt Date: 20101213
  Transmission Date: 20110411
  Serious: Yes (Hospitalization)
  Sender: FDA-Public Use
  Company Number: None

PATIENT
  Age: 54 Year
  Sex: Male
  Weight: 84.4 kg

DRUGS (1)
  1. OXYGEN [Suspect]
     Indication: UPPER RESPIRATORY TRACT INFECTION
     Dosage: 10 ML PRN PO
     Route: 048
     Dates: start: 20101206, end: 20101208

REACTIONS (4)
  - ANXIETY [None]
  - DYSPHAGIA [None]
  - DYSPNOEA [None]
  - SWOLLEN TONGUE [None]
